FAERS Safety Report 7542273-2 (Version None)
Quarter: 2011Q2

REPORT INFORMATION
  Report Type: 
  Country: None (occurrence: None)
  Receive Date: 20110613
  Receipt Date: 20110603
  Transmission Date: 20111010
  Serious: Yes (Other)
  Sender: FDA-Public Use
  Company Number: US-MYLANLABS-2011S1000071

PATIENT
  Age: 26 Year
  Sex: Female

DRUGS (5)
  1. AMNESTEEM [Suspect]
     Dates: end: 20101201
  2. AMNESTEEM [Suspect]
     Dates: start: 20101201, end: 20101216
  3. AMNESTEEM [Suspect]
  4. PLAN B [Concomitant]
     Indication: PROPHYLAXIS
     Dates: start: 20101210, end: 20101201
  5. CLARAVIS [Suspect]
     Dates: start: 20100614

REACTIONS (2)
  - ABORTION INDUCED [None]
  - DRUG EXPOSURE DURING PREGNANCY [None]
